FAERS Safety Report 15209066 (Version 2)
Quarter: 2018Q3

REPORT INFORMATION
  Report Type: Report from Study
  Country: FR (occurrence: FR)
  Receive Date: 20180727
  Receipt Date: 20180801
  Transmission Date: 20181010
  Serious: Yes (Other)
  Sender: FDA-Public Use
  Company Number: FR-JNJFOC-20180729176

PATIENT
  Age: 24 Year
  Sex: Female

DRUGS (2)
  1. SIMPONI [Suspect]
     Active Substance: GOLIMUMAB
     Indication: PROCTITIS HAEMORRHAGIC
     Route: 058
  2. SIMPONI [Suspect]
     Active Substance: GOLIMUMAB
     Indication: PROCTITIS HAEMORRHAGIC
     Route: 058

REACTIONS (8)
  - Sepsis [Unknown]
  - Aerophagia [Unknown]
  - Nasopharyngitis [Unknown]
  - Drug effect decreased [Unknown]
  - Jaundice [Unknown]
  - Liver transplant [Unknown]
  - Colitis ulcerative [Unknown]
  - Pain [Unknown]
